FAERS Safety Report 7222601-8 (Version None)
Quarter: 2011Q1

REPORT INFORMATION
  Report Type: 
  Country: None (occurrence: None)
  Receive Date: 20110106
  Receipt Date: 20110106
  Transmission Date: 20110831
  Serious: Yes (Other)
  Sender: FDA-Public Use
  Company Number: None

PATIENT
  Age: 40 Year
  Sex: Female
  Weight: 70.3075 kg

DRUGS (1)
  1. CYMBALTA [Suspect]
     Indication: DEPRESSION
     Dosage: 60MG ONCE/DAY PO
     Route: 048
     Dates: start: 20091201, end: 20101201

REACTIONS (9)
  - NAUSEA [None]
  - SLEEP DISORDER [None]
  - DECREASED APPETITE [None]
  - DIARRHOEA [None]
  - DIZZINESS [None]
  - AGITATION [None]
  - MOOD SWINGS [None]
  - WITHDRAWAL SYNDROME [None]
  - NIGHTMARE [None]
